FAERS Safety Report 9190596 (Version 1)
Quarter: 2013Q1

REPORT INFORMATION
  Report Type: Spontaneous
  Country: FR (occurrence: None)
  Receive Date: 20130322
  Receipt Date: 20130322
  Transmission Date: 20140127
  Serious: Yes (Other)
  Sender: FDA-Public Use
  Company Number: DEP_00891_2013

PATIENT
  Age: 52 Year
  Sex: Female

DRUGS (4)
  1. GABAPENTIN (GABAPENTIN) [Suspect]
     Dosage: (DF)
  2. VANCOMYCIN [Suspect]
     Dosage: (DF)
  3. TRIMETHOPRIM SULFAMETHOXAZOLE [Suspect]
     Dosage: (DF)
  4. TEGELINE [Concomitant]

REACTIONS (1)
  - Drug reaction with eosinophilia and systemic symptoms [None]
